FAERS Safety Report 6439517-7 (Version None)
Quarter: 2009Q4

REPORT INFORMATION
  Report Type: 
  Country: None (occurrence: None)
  Receive Date: 20091113
  Receipt Date: 20091109
  Transmission Date: 20100525
  Serious: Yes (Death, Hospitalization)
  Sender: FDA-Public Use
  Company Number: A0816094A

PATIENT
  Age: 51 Year
  Sex: Male

DRUGS (2)
  1. ADVAIR DISKUS 100/50 [Suspect]
     Indication: CHRONIC OBSTRUCTIVE PULMONARY DISEASE
     Dosage: 1PUFF AS REQUIRED
     Route: 055
     Dates: start: 20070101
  2. VICODIN [Concomitant]

REACTIONS (5)
  - COMA [None]
  - HEPATIC FAILURE [None]
  - LIVER DISORDER [None]
  - RENAL DISORDER [None]
  - RENAL FAILURE [None]
